FAERS Safety Report 16262540 (Version 2)
Quarter: 2019Q2

REPORT INFORMATION
  Report Type: Report from Study
  Country: None (occurrence: SE)
  Receive Date: 20190502
  Receipt Date: 20190510
  Transmission Date: 20190711
  Serious: Yes (Hospitalization, Other)
  Sender: FDA-Public Use
  Company Number: SE-ABBVIE-19S-150-2763324-00

PATIENT
  Sex: Male
  Weight: 55 kg

DRUGS (2)
  1. DUODOPA [Suspect]
     Active Substance: CARBIDOPA\LEVODOPA
     Route: 050
     Dates: start: 20131017
  2. DUODOPA [Suspect]
     Active Substance: CARBIDOPA\LEVODOPA
     Indication: PARKINSON^S DISEASE
     Route: 050
     Dates: start: 20131009

REACTIONS (8)
  - Embedded device [Recovering/Resolving]
  - Dysphagia [Unknown]
  - Wheezing [Unknown]
  - Embedded device [Recovered/Resolved]
  - Speech disorder [Unknown]
  - Pneumonia aspiration [Recovering/Resolving]
  - Benign prostatic hyperplasia [Unknown]
  - Blood disorder [Unknown]

NARRATIVE: CASE EVENT DATE: 2019
